FAERS Safety Report 15974887 (Version 3)
Quarter: 2019Q2

REPORT INFORMATION
  Report Type: Spontaneous
  Country: BR (occurrence: BR)
  Receive Date: 20190218
  Receipt Date: 20190412
  Transmission Date: 20190711
  Serious: Yes (Death, Other)
  Sender: FDA-Public Use
  Company Number: BR-SA-2019SA043993

PATIENT
  Age: 7 Year
  Sex: Female
  Weight: 32 kg

DRUGS (7)
  1. RANITIDINE. [Suspect]
     Active Substance: RANITIDINE
     Indication: PAIN
  2. AMPLICTIL [Suspect]
     Active Substance: CHLORPROMAZINE HYDROCHLORIDE
     Indication: NAUSEA
     Dosage: 5 DROP, 1X
     Route: 048
     Dates: start: 20180218, end: 20180218
  3. AMPLICTIL [Suspect]
     Active Substance: CHLORPROMAZINE HYDROCHLORIDE
     Indication: VOMITING
  4. BUSCOPAN [Suspect]
     Active Substance: BUTYLSCOPOLAMINE BROMIDE
     Indication: PAIN
  5. BUSCOPAN [Suspect]
     Active Substance: BUTYLSCOPOLAMINE BROMIDE
     Indication: VOMITING
     Dosage: UNK
     Route: 042
     Dates: start: 20180217, end: 20180217
  6. PLASIL [Suspect]
     Active Substance: METOCLOPRAMIDE HYDROCHLORIDE
     Indication: VOMITING
     Dosage: 4 IN 4 HOURS
     Route: 042
     Dates: start: 20180217, end: 20180217
  7. RANITIDINE. [Suspect]
     Active Substance: RANITIDINE
     Indication: VOMITING
     Dosage: 2 DF
     Route: 042
     Dates: start: 20180218, end: 20180218

REACTIONS (3)
  - Drug ineffective [Unknown]
  - Cardio-respiratory arrest [Fatal]
  - Somnolence [Not Recovered/Not Resolved]

NARRATIVE: CASE EVENT DATE: 20180217
